FAERS Safety Report 24420918 (Version 4)
Quarter: 2025Q3

REPORT INFORMATION
  Report Type: Spontaneous
  Country: US (occurrence: US)
  Receive Date: 20241010
  Receipt Date: 20250904
  Transmission Date: 20251021
  Serious: Yes (Disabling, Other)
  Sender: AMGEN
  Company Number: US-AMGEN-USASP2024197347

PATIENT
  Age: 64 Year
  Sex: Female
  Weight: 70.39 kg

DRUGS (34)
  1. TEPEZZA [Suspect]
     Active Substance: TEPROTUMUMAB-TRBW
     Indication: Graves^ disease
     Route: 042
     Dates: start: 202207
  2. TEPEZZA [Suspect]
     Active Substance: TEPROTUMUMAB-TRBW
     Indication: Endocrine ophthalmopathy
     Route: 042
  3. TEPEZZA [Suspect]
     Active Substance: TEPROTUMUMAB-TRBW
     Route: 042
     Dates: start: 20230210
  4. ESCITALOPRAM OXALATE [Concomitant]
     Active Substance: ESCITALOPRAM OXALATE
     Dosage: 20 MILLIGRAM, QD
     Route: 065
  5. CLONAZEPAM [Concomitant]
     Active Substance: CLONAZEPAM
     Dosage: 0.5 MILLIGRAM, QD
     Route: 065
  6. CALCIUM [Concomitant]
     Active Substance: CALCIUM
     Route: 065
  7. VITAMIN D [Concomitant]
     Active Substance: VITAMIN D NOS
     Route: 065
  8. VITAMIN B COMPLEX [Concomitant]
     Active Substance: CYANOCOBALAMIN\DEXPANTHENOL\NIACINAMIDE\PYRIDOXINE HYDROCHLORIDE\RIBOFLAVIN 5^-PHOSPHATE SODIUM\THIA
     Route: 065
  9. TYMLOS [Concomitant]
     Active Substance: ABALOPARATIDE
     Route: 058
     Dates: start: 20220114, end: 20220923
  10. LEVOTHYROXINE SODIUM [Concomitant]
     Active Substance: LEVOTHYROXINE SODIUM
     Dosage: 112 MICROGRAM, QD
     Route: 065
  11. ERYTHROMYCIN [Concomitant]
     Active Substance: ERYTHROMYCIN
     Dosage: 5 MILLIGRAM PER GRAM, BID, (FOR SEVEN DAYS)
     Route: 065
     Dates: start: 20220720
  12. HYDROCHLOROTHIAZIDE [Concomitant]
     Active Substance: HYDROCHLOROTHIAZIDE
     Route: 065
  13. TAPAZOLE [Concomitant]
     Active Substance: METHIMAZOLE
     Route: 065
  14. PANTOPRAZOLE SODIUM [Concomitant]
     Active Substance: PANTOPRAZOLE SODIUM
     Route: 065
  15. TRAZODONE HCL [Concomitant]
     Active Substance: TRAZODONE HYDROCHLORIDE
     Dosage: 50 MILLIGRAM, QD
     Route: 048
  16. LEVOTHYROXINE [Concomitant]
     Active Substance: LEVOTHYROXINE
     Dosage: 112 MICROGRAM, QD
     Route: 048
  17. TRAZODONE [Concomitant]
     Active Substance: TRAZODONE HYDROCHLORIDE
     Dosage: 100 MICROGRAM, QD
     Route: 048
  18. ALBUTEROL SULFATE [Concomitant]
     Active Substance: ALBUTEROL SULFATE
     Dosage: UNK UNK, Q4H
     Route: 045
  19. TUMS [Concomitant]
     Active Substance: CALCIUM CARBONATE
     Route: 065
  20. VITAMIN D3 [Concomitant]
     Active Substance: CHOLECALCIFEROL
     Dosage: 25 MICROGRAM, QD
     Route: 048
     Dates: end: 20230312
  21. RECLAST [Concomitant]
     Active Substance: ZOLEDRONIC ACID
     Dosage: UNK UNK, Q12MO
     Route: 040
  22. PREDNISOLONE ACETATE [Concomitant]
     Active Substance: PREDNISOLONE ACETATE
     Dosage: UNK UNK, TID
     Route: 047
  23. POLYMYXIN B SULFATE AND TRIMETHOPRIM [Concomitant]
     Active Substance: POLYMYXIN B SULFATE\TRIMETHOPRIM SULFATE
     Dosage: UNK UNK, QID
     Route: 047
  24. ILOTYCIN [Concomitant]
     Active Substance: ERYTHROMYCIN
     Route: 065
     Dates: start: 20220720, end: 20220923
  25. SYNTHROID [Concomitant]
     Active Substance: LEVOTHYROXINE SODIUM
     Indication: Hypothyroidism
     Dosage: 112 MICROGRAM, QD
     Route: 065
  26. ROBAXIN [Concomitant]
     Active Substance: METHOCARBAMOL
     Dosage: 750 MILLIGRAM, TID
     Route: 048
     Dates: end: 20220923
  27. TOPROL XL [Concomitant]
     Active Substance: METOPROLOL SUCCINATE
     Route: 065
  28. FORTEO [Concomitant]
     Active Substance: TERIPARATIDE
     Dosage: 0.08 MILLILITER, QD
     Route: 058
     Dates: start: 20220621, end: 20220923
  29. OSCAL D [Concomitant]
     Active Substance: CALCIUM CARBONATE\CHOLECALCIFEROL
     Dosage: UNK UNK, BID (500 MG-200 UNIT)
     Route: 048
     Dates: start: 20220515, end: 20230312
  30. MICROZIDE [Concomitant]
     Active Substance: HYDROCHLOROTHIAZIDE
     Route: 048
     Dates: start: 20220209, end: 20220923
  31. DESYREL [Concomitant]
     Active Substance: TRAZODONE HYDROCHLORIDE
     Route: 048
     Dates: start: 20200803, end: 20220923
  32. DESYREL [Concomitant]
     Active Substance: TRAZODONE HYDROCHLORIDE
     Dosage: 50 MILLIGRAM, QHS
     Route: 048
  33. KLONOPIN [Concomitant]
     Active Substance: CLONAZEPAM
     Dosage: 0.5 MILLIGRAM, QD
     Route: 048
     Dates: start: 20230220
  34. LEXAPRO [Concomitant]
     Active Substance: ESCITALOPRAM OXALATE
     Dosage: 10 MILLIGRAM, QD
     Route: 048
     Dates: start: 20221208

REACTIONS (16)
  - Deafness neurosensory [Not Recovered/Not Resolved]
  - Endocrine ophthalmopathy [Unknown]
  - Graves^ disease [Unknown]
  - Hyperthyroidism [Unknown]
  - Emotional distress [Unknown]
  - Anxiety [Unknown]
  - Blood glucose increased [Unknown]
  - Product communication issue [Unknown]
  - Blood potassium decreased [Unknown]
  - Blood sodium increased [Unknown]
  - Blood urea nitrogen/creatinine ratio decreased [Unknown]
  - Post procedural hypothyroidism [Unknown]
  - Hypercalcaemia [Recovered/Resolved]
  - Vitamin D deficiency [Unknown]
  - Body temperature abnormal [Unknown]
  - Diarrhoea [Unknown]

NARRATIVE: CASE EVENT DATE: 20221007
